FAERS Safety Report 6677959-5 (Version None)
Quarter: 2010Q2

REPORT INFORMATION
  Report Type: 
  Country: None (occurrence: None)
  Receive Date: 20100412
  Receipt Date: 20100407
  Transmission Date: 20101027
  Serious: Yes (Death)
  Sender: FDA-Public Use
  Company Number: US-GILEAD-2010-0028316

PATIENT
  Age: 75 Year
  Sex: Female
  Weight: 84.1 kg

DRUGS (10)
  1. LETAIRIS [Suspect]
     Indication: PULMONARY ARTERIAL HYPERTENSION
     Route: 048
     Dates: start: 20080303, end: 20080423
  2. LETAIRIS [Suspect]
     Route: 055
     Dates: start: 20080424, end: 20090311
  3. ISOSORBIDE MONONITRATE [Concomitant]
  4. PREDNISOLONE [Concomitant]
  5. SINGULAIR [Concomitant]
  6. EFFEXOR XR [Concomitant]
  7. MEDROXYPROGESTERONE [Concomitant]
  8. ASPIRIN [Concomitant]
  9. TYLENOL PM [Concomitant]
  10. OMEPRAZOLE [Concomitant]

REACTIONS (1)
  - CEREBRAL INFARCTION [None]
